FAERS Safety Report 5233605-9 (Version None)
Quarter: 2007Q1

REPORT INFORMATION
  Report Type: 
  Country: None (occurrence: None)
  Receive Date: 20070206
  Receipt Date: 20070125
  Transmission Date: 20070707
  Serious: Yes (Hospitalization)
  Sender: FDA-Public Use
  Company Number: 2005BI020282

PATIENT
  Age: 59 Year
  Sex: Male
  Weight: 70 kg

DRUGS (14)
  1. ZEVALIN [Suspect]
     Indication: BONE MARROW CONDITIONING REGIMEN
     Dosage: 28 MCI; 1X; IV
     Route: 042
     Dates: start: 20050728, end: 20050728
  2. RITUXIMAB [Concomitant]
  3. CARMUSTINE [Concomitant]
  4. ETOPOSIDE [Concomitant]
  5. CYTARABINE [Concomitant]
  6. MELPHALAN [Concomitant]
  7. FILGRASTIM [Concomitant]
  8. AMOXICILLIN [Concomitant]
  9. CIPROFLOXACIN [Concomitant]
  10. CEFTAZIDIME [Concomitant]
  11. BACTRIM [Concomitant]
  12. SULFAMETHOXAZOLE [Concomitant]
  13. TRIMETHOPRIM [Concomitant]
  14. MORPHINE [Concomitant]

REACTIONS (7)
  - BACILLUS INFECTION [None]
  - BRONCHOPNEUMONIA [None]
  - HAEMOGLOBIN DECREASED [None]
  - HAEMOPTYSIS [None]
  - LUNG DISORDER [None]
  - PLATELET COUNT DECREASED [None]
  - WHITE BLOOD CELL COUNT DECREASED [None]
